FAERS Safety Report 6645118-8 (Version None)
Quarter: 2010Q1

REPORT INFORMATION
  Report Type: 
  Country: None (occurrence: None)
  Receive Date: 20100305
  Receipt Date: 20100213
  Transmission Date: 20100710
  Serious: No
  Sender: FDA-Public Use
  Company Number: 2010-00253

PATIENT
  Age: 60 Year
  Sex: Female
  Weight: 70.3075 kg

DRUGS (4)
  1. ZICAM COLD REMEDY ORAL MIST [Suspect]
     Dosage: TID - 3 DOSES
     Dates: start: 20100213, end: 20100213
  2. LEVOXYL [Concomitant]
  3. C ESTRADIOL [Concomitant]
  4. AMYTRIPTYLINE [Concomitant]

REACTIONS (1)
  - AGEUSIA [None]
